FAERS Safety Report 10892621 (Version 1)
Quarter: 2015Q1

REPORT INFORMATION
  Report Type: Spontaneous
  Country: KG (occurrence: KG)
  Receive Date: 20150306
  Receipt Date: 20150306
  Transmission Date: 20150721
  Serious: Yes (Other)
  Sender: FDA-Public Use
  Company Number: KG-PFIZER INC-2015042632

PATIENT
  Age: 60 Year
  Sex: Male
  Weight: 74 kg

DRUGS (2)
  1. LYRICA [Suspect]
     Active Substance: PREGABALIN
     Indication: RADICULOPATHY
     Dosage: 75 MG, 2X/DAY
  2. LYRICA [Suspect]
     Active Substance: PREGABALIN
     Indication: BACK PAIN
     Dosage: 150 MG, 1X/DAY (EVENING)

REACTIONS (6)
  - Myalgia [Unknown]
  - Confusional state [Unknown]
  - Anxiety [Unknown]
  - Psychotic behaviour [Unknown]
  - Aggression [Unknown]
  - Euphoric mood [Unknown]
